FAERS Safety Report 4970173-0 (Version None)
Quarter: 2006Q2

REPORT INFORMATION
  Report Type: 
  Country: None (occurrence: None)
  Receive Date: 20060406
  Receipt Date: 20060322
  Transmission Date: 20061013
  Serious: Yes (Hospitalization)
  Sender: FDA-Public Use
  Company Number: TRP_0455_2005

PATIENT
  Age: 47 Year
  Sex: Male
  Weight: 90.7194 kg

DRUGS (9)
  1. RIBASPHERE [Suspect]
     Indication: HEPATITIS C
     Dosage: DF PO
     Route: 048
     Dates: start: 20050722, end: 20051202
  2. PEG-INTRON [Suspect]
     Indication: HEPATITIS C
     Dosage: DF SC
     Route: 058
     Dates: start: 20050722, end: 20051202
  3. ADVAIR DISKUS 100/50 [Concomitant]
  4. ALBUTEROL SULATE [Concomitant]
  5. DILAUDID [Concomitant]
  6. EFFEXOR [Concomitant]
  7. THEOPHYLLINE [Concomitant]
  8. XANAX [Concomitant]
  9. ADVAIR DISKUS 100/50 [Concomitant]

REACTIONS (6)
  - BIPOLAR I DISORDER [None]
  - DECREASED APPETITE [None]
  - MARITAL PROBLEM [None]
  - SUICIDAL IDEATION [None]
  - TEARFULNESS [None]
  - WEIGHT DECREASED [None]
